FAERS Safety Report 8482353-0 (Version None)
Quarter: 2012Q3

REPORT INFORMATION
  Report Type: 
  Country: None (occurrence: None)
  Receive Date: 20120702
  Receipt Date: 20120618
  Transmission Date: 20120928
  Serious: Yes (Hospitalization)
  Sender: FDA-Public Use
  Company Number: US-JNJFOC-20120515142

PATIENT
  Sex: Male
  Weight: 64.86 kg

DRUGS (3)
  1. EPZICOM [Suspect]
     Indication: HIV INFECTION
     Route: 048
     Dates: start: 20120423, end: 20120428
  2. LISINOPRIL [Suspect]
     Indication: HYPERTENSION
     Route: 048
     Dates: start: 20120319, end: 20120529
  3. EDURANT [Suspect]
     Indication: HIV INFECTION
     Route: 048
     Dates: start: 20120423, end: 20120428

REACTIONS (1)
  - RENAL FAILURE ACUTE [None]
